FAERS Safety Report 14266636 (Version 2)
Quarter: 2018Q1

REPORT INFORMATION
  Report Type: Report from Study
  Country: CN (occurrence: CN)
  Receive Date: 20171211
  Receipt Date: 20180131
  Transmission Date: 20180508
  Serious: Yes (Other)
  Sender: FDA-Public Use
  Company Number: CN-ROCHE-2038601

PATIENT
  Sex: Male

DRUGS (1)
  1. AVASTIN [Suspect]
     Active Substance: BEVACIZUMAB
     Indication: COLORECTAL CANCER
     Route: 041
     Dates: start: 20170421

REACTIONS (1)
  - Intestinal obstruction [Unknown]
